FAERS Safety Report 25956085 (Version 1)
Quarter: 2025Q4

REPORT INFORMATION
  Report Type: Spontaneous
  Country: CN (occurrence: CN)
  Receive Date: 20251024
  Receipt Date: 20251024
  Transmission Date: 20260117
  Serious: Yes (Hospitalization, Disabling)
  Sender: ALEXION PHARMACEUTICALS
  Company Number: CN-ASTRAZENECA-202510CHN019264CN

PATIENT
  Age: 60 Year
  Sex: Female
  Weight: 76 kg

DRUGS (3)
  1. LYNPARZA [Suspect]
     Active Substance: OLAPARIB
     Indication: Swelling
     Dosage: 300 MILLIGRAM, BID
     Dates: start: 20250913, end: 20251019
  2. LYNPARZA [Suspect]
     Active Substance: OLAPARIB
     Indication: Pain
  3. Levothyroxine aristo [Concomitant]
     Dosage: 75 ?G QD
     Route: 065

REACTIONS (1)
  - Hypothyroidism [Unknown]

NARRATIVE: CASE EVENT DATE: 20251019
